FAERS Safety Report 19224430 (Version 1)
Quarter: 2021Q2

REPORT INFORMATION
  Report Type: Spontaneous
  Country: US (occurrence: US)
  Receive Date: 20210505
  Receipt Date: 20210505
  Transmission Date: 20210717
  Serious: No
  Sender: FDA-Public Use
  Company Number: US-ROCHE-2679249

PATIENT
  Sex: Female

DRUGS (2)
  1. ESBRIET [Suspect]
     Active Substance: PIRFENIDONE
     Indication: IDIOPATHIC PULMONARY FIBROSIS
     Route: 048
     Dates: start: 20200826
  2. ESBRIET [Suspect]
     Active Substance: PIRFENIDONE
     Indication: IDIOPATHIC PULMONARY FIBROSIS
     Dosage: ONE TABLET 3 TIMES A DAY WEEK 1, 2 TABLET 3 TIMES A DAY WEEK 2, 3 TABLET 3 TIMES A DAY WEEK
     Route: 048
     Dates: start: 20200831

REACTIONS (10)
  - Diarrhoea [Recovered/Resolved]
  - Nausea [Unknown]
  - Nervousness [Recovered/Resolved]
  - Anger [Unknown]
  - Poor quality sleep [Unknown]
  - Restlessness [Recovered/Resolved]
  - Fatigue [Unknown]
  - Abdominal pain upper [Unknown]
  - Insomnia [Recovered/Resolved]
  - Pruritus [Unknown]
